FAERS Safety Report 9315611 (Version 1)
Quarter: 2013Q2

REPORT INFORMATION
  Report Type: Spontaneous
  Country: US (occurrence: US)
  Receive Date: 20130529
  Receipt Date: 20130529
  Transmission Date: 20140414
  Serious: No
  Sender: FDA-Public Use
  Company Number: US-009507513-1305USA016634

PATIENT
  Sex: Male
  Weight: 52.15 kg

DRUGS (3)
  1. MIRALAX [Suspect]
     Indication: CONSTIPATION
     Dosage: UNK UNK, PRN
     Route: 048
  2. SENNA [Concomitant]
     Indication: CONSTIPATION
  3. ALOE VERA [Concomitant]
     Indication: CONSTIPATION

REACTIONS (1)
  - Drug effect decreased [Unknown]
